FAERS Safety Report 8103042-8 (Version None)
Quarter: 2012Q1

REPORT INFORMATION
  Report Type: 
  Country: None (occurrence: None)
  Receive Date: 20120201
  Receipt Date: 20120201
  Transmission Date: 20120608
  Serious: Yes (Hospitalization)
  Sender: FDA-Public Use
  Company Number: None

PATIENT
  Age: 96 Year
  Sex: Male
  Weight: 58.059 kg

DRUGS (1)
  1. PRADAXA [Suspect]
     Indication: ATRIAL FIBRILLATION
     Dosage: ONE 150 MG CAPSULE
     Route: 048
     Dates: start: 20110511, end: 20110925

REACTIONS (8)
  - SYNCOPE [None]
  - ATRIAL FIBRILLATION [None]
  - RENAL INJURY [None]
  - CHROMATURIA [None]
  - ANAEMIA [None]
  - DIZZINESS [None]
  - HAEMORRHAGE [None]
  - FAECES DISCOLOURED [None]
